FAERS Safety Report 9355095 (Version 4)
Quarter: 2013Q3

REPORT INFORMATION
  Report Type: Spontaneous
  Country: US (occurrence: US)
  Receive Date: 20130619
  Receipt Date: 20130830
  Transmission Date: 20140515
  Serious: Yes (Life-Threatening, Hospitalization, Other)
  Sender: FDA-Public Use
  Company Number: US-009507513-1306USA007614

PATIENT
  Age: 32 Year
  Sex: Male
  Weight: 83.9 kg

DRUGS (6)
  1. SINGULAIR [Suspect]
     Indication: ASTHMA
     Dosage: 10 MG, QD
     Route: 048
  2. SINGULAIR [Suspect]
     Indication: HYPERSENSITIVITY
  3. ZYRTEC [Concomitant]
     Indication: HYPERSENSITIVITY
     Dosage: 10 MG, QD
     Route: 048
  4. XOPENEX [Concomitant]
     Indication: ASTHMA
     Dosage: 0.63 MG, QD, 1 AMP
     Route: 048
  5. SPIRIVA [Concomitant]
     Indication: ASTHMA
     Dosage: 18 MICROGRAM, QD, 1 INHL
     Route: 055
  6. MONTELUKAST SODIUM [Concomitant]
     Indication: HYPERSENSITIVITY
     Dosage: 10 MG, QD
     Route: 048

REACTIONS (3)
  - Pulmonary embolism [Recovered/Resolved]
  - Chest pain [Recovered/Resolved]
  - Overdose [Unknown]
